FAERS Safety Report 14366765 (Version 1)
Quarter: 2018Q1

REPORT INFORMATION
  Report Type: Report from Study
  Country: US (occurrence: US)
  Receive Date: 20180109
  Receipt Date: 20180109
  Transmission Date: 20180509
  Serious: Yes (Other)
  Sender: FDA-Public Use
  Company Number: US-BIOGEN-2014BI012259

PATIENT
  Sex: Male

DRUGS (2)
  1. TECFIDERA [Suspect]
     Active Substance: DIMETHYL FUMARATE
     Dosage: STARTING DOSE
     Route: 048
  2. TECFIDERA [Suspect]
     Active Substance: DIMETHYL FUMARATE
     Indication: MULTIPLE SCLEROSIS
     Dosage: STARTING DOSE
     Route: 048

REACTIONS (9)
  - Neoplasm malignant [Recovered/Resolved]
  - Limb injury [Unknown]
  - Flushing [Unknown]
  - Asthenia [Unknown]
  - Memory impairment [Unknown]
  - Cognitive disorder [Unknown]
  - Depressed mood [Unknown]
  - Gait disturbance [Unknown]
  - Temperature intolerance [Unknown]
